FAERS Safety Report 8081547-6 (Version None)
Quarter: 2012Q1

REPORT INFORMATION
  Report Type: 
  Country: None (occurrence: None)
  Receive Date: 20120130
  Receipt Date: 20120116
  Transmission Date: 20120608
  Serious: Yes (Other)
  Sender: FDA-Public Use
  Company Number: CA-ROCHE-GNE292850

PATIENT
  Sex: Female
  Weight: 52.056 kg

DRUGS (11)
  1. ADVAIR DISKUS 100/50 [Concomitant]
  2. FLOVENT [Concomitant]
  3. CORTISONE ACETATE [Concomitant]
  4. XOLAIR [Suspect]
     Indication: ASTHMA
     Dosage: 150 MG, 1/MONTH
     Route: 058
     Dates: start: 20090917
  5. PREDNISONE TAB [Concomitant]
     Indication: PRODUCT USED FOR UNKNOWN INDICATION
     Dosage: 15 MG, UNK
  6. PREDNISONE TAB [Concomitant]
  7. VENTOLIN [Concomitant]
     Indication: PRODUCT USED FOR UNKNOWN INDICATION
     Dosage: 2 PUFF, PRN, DOSE=2 PUFF
  8. PREDNISONE TAB [Concomitant]
     Dosage: 10 MG, UNK
  9. SINGULAIR [Concomitant]
  10. XOLAIR [Suspect]
     Dosage: 150 MG, 1/MONTH
     Dates: start: 20091112
  11. XOLAIR [Suspect]
     Dosage: 150 MG, 1/MONTH
     Route: 058
     Dates: start: 20091215

REACTIONS (16)
  - BALANCE DISORDER [None]
  - HYPERSENSITIVITY [None]
  - INFLUENZA [None]
  - BRONCHIAL OBSTRUCTION [None]
  - BREATH SOUNDS ABNORMAL [None]
  - RESPIRATORY DISORDER [None]
  - NASOPHARYNGITIS [None]
  - MALAISE [None]
  - OEDEMA PERIPHERAL [None]
  - FATIGUE [None]
  - NAUSEA [None]
  - WHEEZING [None]
  - COUGH [None]
  - BLOOD PRESSURE DIASTOLIC DECREASED [None]
  - GASTROENTERITIS [None]
  - PRODUCTIVE COUGH [None]
